FAERS Safety Report 25082336 (Version 2)
Quarter: 2025Q1

REPORT INFORMATION
  Report Type: Report from Study
  Country: GB (occurrence: GB)
  Receive Date: 20250317
  Receipt Date: 20250320
  Transmission Date: 20250408
  Serious: Yes (Death, Other)
  Sender: TAKEDA
  Company Number: GB-TAKEDA-2025TUS026623

PATIENT
  Age: 78 Year
  Sex: Male

DRUGS (2)
  1. VEDOLIZUMAB [Suspect]
     Active Substance: VEDOLIZUMAB
     Indication: Colitis ulcerative
  2. VEDOLIZUMAB [Suspect]
     Active Substance: VEDOLIZUMAB

REACTIONS (2)
  - Death [Fatal]
  - Cerebrovascular accident [Unknown]

NARRATIVE: CASE EVENT DATE: 20250311
